FAERS Safety Report 9872427 (Version 2)
Quarter: 2014Q1

REPORT INFORMATION
  Report Type: Other
  Country: US (occurrence: US)
  Receive Date: 20140206
  Receipt Date: 20140206
  Transmission Date: 20141002
  Serious: No
  Sender: FDA-Public Use
  Company Number: US-ACORDA-ACO_100058_2013

PATIENT
  Sex: Female

DRUGS (1)
  1. AMPYRA [Suspect]
     Indication: MULTIPLE SCLEROSIS
     Dosage: 10 MG, Q 12 HRS
     Route: 048
     Dates: start: 20130412

REACTIONS (7)
  - Fall [Unknown]
  - Vulvovaginal pruritus [Unknown]
  - Dysuria [Unknown]
  - Balance disorder [Unknown]
  - Dizziness [Unknown]
  - Constipation [Unknown]
  - Multiple sclerosis relapse [Unknown]
